FAERS Safety Report 7647881-6 (Version None)
Quarter: 2011Q3

REPORT INFORMATION
  Report Type: 
  Country: None (occurrence: None)
  Receive Date: 20110801
  Receipt Date: 20110506
  Transmission Date: 20111222
  Serious: No
  Sender: FDA-Public Use
  Company Number: US-ABBOTT-11P-163-0804547-00

PATIENT
  Age: 71 Year
  Sex: Female
  Weight: 63.636 kg

DRUGS (12)
  1. PANCREATIN TRIPLE STRENGTH CAP [Suspect]
     Indication: PANCREATICODUODENECTOMY
     Dosage: DAILY DOSE:  UNKNOWN, AS USED: 6000 IU, FREQUENCY: WITH MEALS
     Route: 065
     Dates: start: 20101122, end: 20101214
  2. METFORMIN [Concomitant]
     Indication: PRODUCT USED FOR UNKNOWN INDICATION
     Dosage: DAILY DOSE: 2000 MILLIGRAM(S), FREQ: ONCE IN 12 HOURS
     Route: 065
  3. LISINOPRIL [Concomitant]
     Indication: PRODUCT USED FOR UNKNOWN INDICATION
     Dosage: DAILY DOSE: 20 MILLIGRAM(S), EVERY MORNING
     Route: 065
  4. PANCREATIN TRIPLE STRENGTH CAP [Suspect]
     Dosage: DAILY DOSE:  UNKNOWN, AS USED: 12000 IU, FREQUENCY: WITH MEALS
     Route: 065
     Dates: start: 20101214
  5. METOPROLOL [Concomitant]
     Indication: PRODUCT USED FOR UNKNOWN INDICATION
     Dosage: DAILY DOSE:  UNKNOWN, ONE EVERY MORNING AND TWO EVERY NIGHT
     Route: 065
  6. VITAMINS NOS [Concomitant]
     Indication: PRODUCT USED FOR UNKNOWN INDICATION
     Dosage: DAILY DOSE:  UNKNOWN, FREQUENCY: ONCE IN A DAY
     Route: 065
  7. CALCIUM PHOSPHATE AND CALCIUM SODIUM LACTATE AND ERGOCALCIFEROL [Concomitant]
     Indication: PRODUCT USED FOR UNKNOWN INDICATION
     Dosage: DAILY DOSE:  UNKNOWN, FREQUENCY: ONCE IN A DAY
     Route: 065
  8. TOCOPHEROL [Concomitant]
     Indication: PRODUCT USED FOR UNKNOWN INDICATION
     Dosage: DAILY DOSE: 400 INTERNATIONAL UNIT(S)
     Route: 065
  9. ASCORBIC ACID [Concomitant]
     Indication: PRODUCT USED FOR UNKNOWN INDICATION
     Dosage: DAILY DOSE: 500 MILLIGRAM(S)
     Route: 065
  10. LORAZEPAM [Concomitant]
     Indication: PRODUCT USED FOR UNKNOWN INDICATION
     Dosage: DAILY DOSE:  UNKNOWN, FREQUENCY: ONCE IN A DAY (DAILY AND AS NEEDED)
     Route: 065
  11. ACETYLSALICYLIC ACID [Concomitant]
     Indication: PRODUCT USED FOR UNKNOWN INDICATION
     Dosage: DAILY DOSE: 81 MILLIGRAM(S)
     Route: 065
  12. SUMATRIPTAN [Concomitant]
     Indication: PRODUCT USED FOR UNKNOWN INDICATION
     Dosage: DAILY DOSE:  UNKNOWN, FREQUENCY: AS NEEDED
     Route: 065

REACTIONS (2)
  - FLATULENCE [None]
  - GLYCOSYLATED HAEMOGLOBIN INCREASED [None]
